FAERS Safety Report 9350888 (Version 3)
Quarter: 2013Q4

REPORT INFORMATION
  Report Type: Spontaneous
  Country: US (occurrence: US)
  Receive Date: 20130617
  Receipt Date: 20131028
  Transmission Date: 20140711
  Serious: Yes (Life-Threatening, Hospitalization)
  Sender: FDA-Public Use
  Company Number: US-BAYER-2013-071227

PATIENT
  Age: 30 Year
  Sex: Female
  Weight: 63.49 kg

DRUGS (5)
  1. MIRENA [Suspect]
     Indication: CONTRACEPTION
     Dosage: 20 MCG/24HR, CONT
     Route: 015
     Dates: start: 20081015, end: 20111020
  2. CALNATE [Concomitant]
     Dosage: 27-1 MG ONCE DAILY
  3. ACYCLOVIR [ACICLOVIR] [Concomitant]
     Dosage: APPLY TO AFFECTED AREA 4-6 TIMES DAILY AS NEEDED
  4. TOBREX [Concomitant]
     Dosage: 4 DROPS IN AFFECTED EYE DAILY
  5. DIFLUCAN [Concomitant]
     Dosage: 1 NOW REPEAT IN 4 DAYS

REACTIONS (9)
  - Uterine perforation [None]
  - Injury [None]
  - Abdominal pain [None]
  - General physical health deterioration [None]
  - Anxiety [None]
  - Anhedonia [None]
  - Infection [None]
  - Emotional distress [None]
  - Depression [None]
